FAERS Safety Report 18703236 (Version 1)
Quarter: 2021Q1

REPORT INFORMATION
  Report Type: Spontaneous
  Country: US (occurrence: US)
  Receive Date: 20210105
  Receipt Date: 20210105
  Transmission Date: 20210419
  Serious: No
  Sender: FDA-Public Use
  Company Number: US-TEVA-2020-US-1864594

PATIENT

DRUGS (3)
  1. PENICILLINE [Suspect]
     Active Substance: PENICILLIN G
     Route: 065
  2. AMOXICILLIN. [Suspect]
     Active Substance: AMOXICILLIN
     Route: 065
  3. HEP B VACCINE [Suspect]
     Active Substance: HEPATITIS B VIRUS VACCINE
     Route: 065

REACTIONS (1)
  - Drug hypersensitivity [Unknown]
